FAERS Safety Report 23812472 (Version 1)
Quarter: 2024Q2

REPORT INFORMATION
  Report Type: Report from Study
  Country: CA (occurrence: CA)
  Receive Date: 20240503
  Receipt Date: 20240503
  Transmission Date: 20240716
  Serious: Yes (Hospitalization, Other)
  Sender: FDA-Public Use
  Company Number: CA-JNJFOC-20231165250

PATIENT
  Age: 57 Year
  Sex: Male
  Weight: 111 kg

DRUGS (2)
  1. REMICADE [Suspect]
     Active Substance: INFLIXIMAB
     Indication: Crohn^s disease
     Route: 041
     Dates: start: 20101201
  2. REMICADE [Suspect]
     Active Substance: INFLIXIMAB
     Dosage: INFUSED ON DEC 07, 2023 AND EMPTY VIALS DISCARDED
     Route: 041
     Dates: start: 20231207

REACTIONS (6)
  - Pyelonephritis [Unknown]
  - Urinary retention [Unknown]
  - Proctectomy [Recovering/Resolving]
  - Wound [Recovering/Resolving]
  - Infection [Unknown]
  - Prostatomegaly [Unknown]

NARRATIVE: CASE EVENT DATE: 20231111
